FAERS Safety Report 14815298 (Version 4)
Quarter: 2019Q3

REPORT INFORMATION
  Report Type: Spontaneous
  Country: FR (occurrence: FR)
  Receive Date: 20180426
  Receipt Date: 20190801
  Transmission Date: 20191004
  Serious: Yes (Hospitalization, Other)
  Sender: FDA-Public Use
  Company Number: FR-PFIZER INC-2018170646

PATIENT
  Age: 83 Year
  Sex: Male

DRUGS (16)
  1. KETAMINE RENAUDIN [Suspect]
     Active Substance: KETAMINE
     Indication: SEDATION
     Dosage: 300 MG, UNK (EVERY HOUR)
     Route: 042
     Dates: start: 20180322, end: 20180329
  2. CORDARONE [Suspect]
     Active Substance: AMIODARONE HYDROCHLORIDE
     Indication: LEFT VENTRICULAR DYSFUNCTION
     Dosage: 200 MG, 1X/DAY
     Route: 048
     Dates: start: 20180322, end: 20180329
  3. HYDROCORTISONE. [Suspect]
     Active Substance: HYDROCORTISONE
     Indication: ADRENAL INSUFFICIENCY
     Dosage: 200 MG, DAILY
     Route: 042
     Dates: start: 20180322, end: 20180329
  4. MIDAZOLAM [Suspect]
     Active Substance: MIDAZOLAM HYDROCHLORIDE
     Indication: SEDATION
     Dosage: 12 MG, UNK (EVERY HOUR)
     Route: 042
     Dates: start: 20180322, end: 20180331
  5. ERYTHROCINE [Suspect]
     Active Substance: ERYTHROMYCIN
     Dosage: 100 MG, 3X/DAY (EVERY 8 HOURS)
     Route: 042
     Dates: start: 20180327, end: 20180329
  6. ACETYLCYSTEINE. [Suspect]
     Active Substance: ACETYLCYSTEINE
     Dosage: 200 MG, UNK
     Route: 042
     Dates: start: 20180326, end: 20180329
  7. OFLOXACINE [Suspect]
     Active Substance: OFLOXACIN
     Dosage: 200 MG, 2X/DAY (EVERY 12 HOURS)
     Route: 042
     Dates: start: 20180322, end: 20180329
  8. ROVAMYCINE [SPIRAMYCIN ADEPATE] [Concomitant]
     Active Substance: SPIRAMYCIN ADIPATE
     Dosage: 1.5 MIU, 3X/DAY (Q8H)
     Route: 042
     Dates: start: 20180322, end: 20180401
  9. NIMBEX [Suspect]
     Active Substance: CISATRACURIUM BESYLATE
     Indication: SEDATION
     Dosage: 20 MG, UNK (EVERY HOUR)
     Route: 042
     Dates: start: 20180326, end: 20180328
  10. PANTOPRAZOLE SODIUM. [Suspect]
     Active Substance: PANTOPRAZOLE SODIUM
     Indication: STRESS ULCER
     Dosage: 40 MG, 1X/DAY
     Route: 042
     Dates: start: 20180322, end: 20180329
  11. HEPARINE CALCIUM PANPHARMA [Concomitant]
     Active Substance: HEPARIN CALCIUM
     Indication: THROMBOSIS PROPHYLAXIS
     Dosage: UNK
     Route: 042
     Dates: start: 20180322
  12. PYRIDOXINE HYDROCHLORIDE. [Concomitant]
     Active Substance: PYRIDOXINE HYDROCHLORIDE
     Indication: HYPOVITAMINOSIS
     Dosage: UNK
     Route: 042
     Dates: start: 20180324, end: 20180328
  13. THIAMINE. [Concomitant]
     Active Substance: THIAMINE
     Indication: HYPOVITAMINOSIS
     Dosage: UP TO 500 MG / DAY
     Route: 042
     Dates: start: 20180324, end: 20180328
  14. FLUCORTAC [Suspect]
     Active Substance: FLUDROCORTISONE ACETATE
     Indication: ADRENAL INSUFFICIENCY
     Dosage: 1 DF, 1X/DAY
     Route: 048
     Dates: start: 20180323, end: 20180328
  15. SUFENTANIL [Suspect]
     Active Substance: SUFENTANIL
     Indication: SEDATION
     Dosage: 30 UG, UNK (EVERY HOUR)
     Route: 042
     Dates: start: 20180322, end: 20180331
  16. NORADRENALINE [Suspect]
     Active Substance: NOREPINEPHRINE
     Indication: CARDIOGENIC SHOCK
     Dosage: FROM 8 MG TO 32 MG PER 50 ML
     Route: 042
     Dates: start: 20180322, end: 20180330

REACTIONS (1)
  - Hepatitis [Recovering/Resolving]

NARRATIVE: CASE EVENT DATE: 20180327
